FAERS Safety Report 8530365-0 (Version None)
Quarter: 2012Q3

REPORT INFORMATION
  Report Type: 
  Country: None (occurrence: None)
  Receive Date: 20120723
  Receipt Date: 20120713
  Transmission Date: 20120928
  Serious: Yes (Hospitalization)
  Sender: FDA-Public Use
  Company Number: FR-PFIZER INC-2012174731

PATIENT
  Age: 76 Year
  Sex: Male

DRUGS (11)
  1. ALDACTONE [Concomitant]
     Dosage: UNK
     Dates: start: 20100301
  2. PARACETAMOL [Concomitant]
     Dosage: UNK
     Dates: start: 20100301
  3. IRBESARTAN [Concomitant]
     Dosage: UNK
     Dates: start: 20100301
  4. CORDARONE [Suspect]
     Dosage: 200 MG, DAILY
     Route: 048
     Dates: start: 20120517, end: 20120607
  5. DIAMICRON [Concomitant]
     Dosage: UNK
     Dates: start: 20100301
  6. LERCANIDIPINE [Concomitant]
     Dosage: UNK
     Dates: start: 20100301, end: 20120326
  7. GLUCOPHAGE [Concomitant]
     Dosage: UNK
     Dates: start: 20100301
  8. PANTOPRAZOLE [Concomitant]
     Dosage: UNK
     Dates: start: 20110301
  9. CORDARONE [Suspect]
     Indication: ARRHYTHMIA SUPRAVENTRICULAR
     Dosage: 200 MG, DAILY
     Route: 048
     Dates: start: 20100301, end: 20120324
  10. LERCANIDIPINE [Concomitant]
     Dosage: UNK
     Dates: start: 20120518
  11. MODOPAR [Concomitant]
     Dosage: UNK
     Dates: start: 20110301

REACTIONS (2)
  - RASH ERYTHEMATOUS [None]
  - PHOTOSENSITIVITY REACTION [None]
